FAERS Safety Report 25603969 (Version 1)
Quarter: 2025Q3

REPORT INFORMATION
  Report Type: Spontaneous
  Country: JP (occurrence: JP)
  Receive Date: 20250725
  Receipt Date: 20250725
  Transmission Date: 20251021
  Serious: Yes (Other)
  Sender: RECORDATI
  Company Number: JP-ORPHANEU-2025005162

PATIENT
  Age: 5 Decade
  Sex: Female

DRUGS (1)
  1. OSILODROSTAT [Suspect]
     Active Substance: OSILODROSTAT
     Indication: Pituitary-dependent Cushing^s syndrome

REACTIONS (5)
  - Delirium [Recovering/Resolving]
  - Adrenal insufficiency [Unknown]
  - Depressive symptom [Recovering/Resolving]
  - Pyrexia [Unknown]
  - Blood pressure decreased [Unknown]
